FAERS Safety Report 7361931-6 (Version None)
Quarter: 2011Q1

REPORT INFORMATION
  Report Type: 
  Country: None (occurrence: None)
  Receive Date: 20110315
  Receipt Date: 20110315
  Transmission Date: 20110831
  Serious: Yes (Life-Threatening, Hospitalization)
  Sender: FDA-Public Use
  Company Number: None

PATIENT
  Age: 16 Year
  Sex: Female
  Weight: 63.5036 kg

DRUGS (1)
  1. ZARAH 3 MG/0.03MG WATSON [Suspect]
     Indication: ACNE
     Dosage: 3MG/0.03MG ONE A DAY PO
     Route: 048
     Dates: start: 20101128, end: 20110127

REACTIONS (6)
  - ABASIA [None]
  - BLOOD DISORDER [None]
  - OEDEMA PERIPHERAL [None]
  - PAIN IN EXTREMITY [None]
  - THROMBOSIS [None]
  - SKIN DISCOLOURATION [None]
